FAERS Safety Report 10174957 (Version 1)
Quarter: 2014Q2

REPORT INFORMATION
  Report Type: Spontaneous
  Country: US (occurrence: US)
  Receive Date: 20140515
  Receipt Date: 20140515
  Transmission Date: 20141212
  Serious: Yes (Death, Hospitalization, Other)
  Sender: FDA-Public Use
  Company Number: US-TEVA-482047USA

PATIENT
  Age: 70 Year
  Sex: Male
  Weight: 88 kg

DRUGS (14)
  1. BENDAMUSTINE [Suspect]
     Indication: MANTLE CELL LYMPHOMA
     Route: 065
  2. IBRUTINIB [Suspect]
     Indication: MANTLE CELL LYMPHOMA
     Dosage: 560 MILLIGRAM DAILY;
     Route: 048
     Dates: start: 20140117, end: 20140307
  3. ALBUTEROL [Concomitant]
  4. DIPHENHYDRAMINE HCL W/LIDOCAINE/ NYSTATIN [Concomitant]
     Route: 065
  5. HYDROXYZINE PAMOATE [Concomitant]
  6. LEVOFLOXACIN [Concomitant]
  7. OXYCODONE HYDROCHLORIDE [Concomitant]
  8. PROCHLORPERAZINE MALEATE [Concomitant]
  9. RANITIDINE HYDROCHLORIDE [Concomitant]
  10. VITAMIN D3 [Concomitant]
  11. BUDESONIDE [Concomitant]
  12. CITALOPRAM HYDROBROMIDE [Concomitant]
  13. DIAZEPAM [Concomitant]
  14. GABAPENTIN [Concomitant]

REACTIONS (6)
  - Encephalopathy [Not Recovered/Not Resolved]
  - Subdural haemorrhage [Not Recovered/Not Resolved]
  - Urosepsis [Unknown]
  - Acute leukaemia [Fatal]
  - Subdural haematoma [Fatal]
  - Rash [Unknown]
